FAERS Safety Report 8341708-5 (Version None)
Quarter: 2012Q2

REPORT INFORMATION
  Report Type: 
  Country: None (occurrence: None)
  Receive Date: 20120507
  Receipt Date: 20120426
  Transmission Date: 20120825
  Serious: Yes (Other)
  Sender: FDA-Public Use
  Company Number: PHHY2012EC038348

PATIENT
  Sex: Female

DRUGS (1)
  1. DIOVAN HCT [Suspect]
     Indication: HYPERTENSION
     Dosage: 1 DF (80 MG VALS AND 12.5 MG HCTZ), DAILY
     Route: 048
     Dates: start: 20080101

REACTIONS (2)
  - VISUAL ACUITY REDUCED [None]
  - CATARACT [None]
